FAERS Safety Report 17421322 (Version 1)
Quarter: 2020Q1

REPORT INFORMATION
  Report Type: Spontaneous
  Country: US (occurrence: US)
  Receive Date: 20200214
  Receipt Date: 20200214
  Transmission Date: 20200409
  Serious: Yes (Death)
  Sender: FDA-Public Use
  Company Number: US-BTG-202000026

PATIENT
  Age: 70 Year
  Sex: Male

DRUGS (3)
  1. IVFS [Concomitant]
     Indication: PRODUCT USED FOR UNKNOWN INDICATION
     Dosage: UNKNOWN
     Route: 041
  2. DIGOXIN. [Suspect]
     Active Substance: DIGOXIN
     Indication: COMPLETED SUICIDE
     Dosage: 10 TABLETS
     Route: 065
  3. DIGIFAB [Suspect]
     Active Substance: OVINE DIGOXIN IMMUNE FAB
     Indication: TOXICITY TO VARIOUS AGENTS
     Dosage: 10 VIALS
     Route: 065

REACTIONS (1)
  - Completed suicide [Fatal]
